FAERS Safety Report 24341141 (Version 1)
Quarter: 2024Q3

REPORT INFORMATION
  Report Type: Other
  Country: TW (occurrence: TW)
  Receive Date: 20240919
  Receipt Date: 20240919
  Transmission Date: 20241017
  Serious: Yes (Other)
  Sender: DENTSPLY
  Company Number: TW-DENTSPLY-2024SCDP000265

PATIENT
  Age: 52 Year
  Sex: Female

DRUGS (2)
  1. LIDOCAINE HYDROCHLORIDE AND EPINEPHRINE BITARTRATE [Suspect]
     Active Substance: EPINEPHRINE BITARTRATE\LIDOCAINE HYDROCHLORIDE
     Indication: Local anaesthesia
     Dosage: ABOUT 0.5 ML EACH SIDE 2% LIDOCAINE CONTAINING EPINEPHRINE 1:50000 INJECTION (PFT) THROUGH A 25-GAUZ
  2. SUGAMMADEX [Concomitant]
     Active Substance: SUGAMMADEX
     Indication: Neuromuscular blockade reversal
     Dosage: UNK

REACTIONS (1)
  - Gaze palsy [Recovered/Resolved]
